FAERS Safety Report 8099540-6 (Version None)
Quarter: 2012Q1

REPORT INFORMATION
  Report Type: 
  Country: None (occurrence: None)
  Receive Date: 20120129
  Receipt Date: 20110927
  Transmission Date: 20120608
  Serious: No
  Sender: FDA-Public Use
  Company Number: US-ABBOTT-11P-163-0858200-00

PATIENT
  Sex: Female
  Weight: 77.18 kg

DRUGS (6)
  1. HYDROCODONE BITARTRATE [Concomitant]
     Indication: PAIN
  2. ESTRADIOL [Concomitant]
     Indication: HORMONE REPLACEMENT THERAPY
  3. FLUOXETINE [Concomitant]
     Indication: DEPRESSION
  4. HUMIRA [Suspect]
     Indication: PSORIATIC ARTHROPATHY
     Dates: start: 20110501
  5. HUMIRA [Suspect]
     Indication: RHEUMATOID ARTHRITIS
  6. TIZANIDINE HCL [Concomitant]
     Indication: MUSCLE RELAXANT THERAPY

REACTIONS (3)
  - ASTHENIA [None]
  - PAIN [None]
  - ABASIA [None]
